FAERS Safety Report 25498683 (Version 2)
Quarter: 2025Q3

REPORT INFORMATION
  Report Type: Spontaneous
  Country: GB (occurrence: GB)
  Receive Date: 20250701
  Receipt Date: 20250806
  Transmission Date: 20251020
  Serious: Yes (Other)
  Sender: ALIMERA
  Company Number: GB-ALIMERA SCIENCES INC.-GB-A16013-25-000226

PATIENT

DRUGS (2)
  1. ILUVIEN [Suspect]
     Active Substance: FLUOCINOLONE ACETONIDE
     Indication: Retinal vasculitis
     Dosage: 0.25 MICROGRAM, QD - RIGHT EYE
     Route: 031
     Dates: start: 20201027
  2. MYCOPHENOLATE MOFETIL [Concomitant]
     Active Substance: MYCOPHENOLATE MOFETIL
     Indication: Uveitis
     Route: 065

REACTIONS (6)
  - Blindness [Unknown]
  - Intraocular pressure increased [Unknown]
  - Cataract [Unknown]
  - Cataract operation [Recovered/Resolved]
  - Eye laser surgery [Recovered/Resolved]
  - Off label use [Unknown]
